FAERS Safety Report 8174857-5 (Version None)
Quarter: 2012Q1

REPORT INFORMATION
  Report Type: 
  Country: None (occurrence: None)
  Receive Date: 20120229
  Receipt Date: 20110225
  Transmission Date: 20120608
  Serious: No
  Sender: FDA-Public Use
  Company Number: US-GLAXOSMITHKLINE-A0915413A

PATIENT
  Age: 83 Year
  Sex: Female

DRUGS (11)
  1. CARDIZEM [Concomitant]
  2. SIMVASTATIN [Concomitant]
  3. UNIVASC [Concomitant]
  4. LASIX [Concomitant]
  5. VITAMIN D [Concomitant]
  6. DILTIAZEM [Concomitant]
  7. VITAMIN B-12 [Concomitant]
  8. VALTREX [Suspect]
     Indication: GENITAL HERPES
     Dosage: 500MG PER DAY
     Route: 048
     Dates: start: 20070801, end: 20110501
  9. IMDUR [Concomitant]
  10. ATIVAN [Concomitant]
  11. COUMADIN [Concomitant]

REACTIONS (4)
  - BACK PAIN [None]
  - PAIN [None]
  - ARTHRALGIA [None]
  - GROIN PAIN [None]
